FAERS Safety Report 19402116 (Version 4)
Quarter: 2021Q3

REPORT INFORMATION
  Report Type: Report from Study
  Country: US (occurrence: US)
  Receive Date: 20210611
  Receipt Date: 20210930
  Transmission Date: 20211014
  Serious: Yes (Death, Hospitalization, Other)
  Sender: FDA-Public Use
  Company Number: US-ACADIA PHARMACEUTICALS INC.-ACA-2021-PIM-002093

PATIENT
  Age: 75 Year
  Sex: Male

DRUGS (31)
  1. NUPLAZID [Suspect]
     Active Substance: PIMAVANSERIN TARTRATE
     Indication: PARKINSON^S DISEASE PSYCHOSIS
     Dosage: 34 MILLIGRAM, QD
     Route: 048
     Dates: start: 20210327, end: 202106
  2. LIDOCAINE. [Concomitant]
     Active Substance: LIDOCAINE
  3. PILOCARPINE. [Concomitant]
     Active Substance: PILOCARPINE
  4. VITAMIN B12 [Concomitant]
     Active Substance: CYANOCOBALAMIN
  5. VITAMIN C [Concomitant]
     Active Substance: ASCORBIC ACID
  6. NUPLAZID [Suspect]
     Active Substance: PIMAVANSERIN TARTRATE
     Indication: DELUSION
  7. CEQUA [Concomitant]
     Active Substance: CYCLOSPORINE
  8. KLONOPIN [Concomitant]
     Active Substance: CLONAZEPAM
  9. POLYETHYLENE [Concomitant]
     Active Substance: HIGH DENSITY POLYETHYLENE
  10. RYTARY [Concomitant]
     Active Substance: CARBIDOPA\LEVODOPA
  11. PRAZOSIN. [Suspect]
     Active Substance: PRAZOSIN
     Dosage: UNK
  12. MIDODRINE [Concomitant]
     Active Substance: MIDODRINE
  13. QUETIAPINE. [Concomitant]
     Active Substance: QUETIAPINE
  14. VITAMIN D3 [Concomitant]
     Active Substance: CHOLECALCIFEROL
  15. NUPLAZID [Suspect]
     Active Substance: PIMAVANSERIN TARTRATE
     Indication: HALLUCINATION
     Dosage: 34 MILLIGRAM, QD
     Route: 048
     Dates: start: 202107, end: 202109
  16. ASPIRIN. [Concomitant]
     Active Substance: ASPIRIN
  17. AZELASTINE. [Concomitant]
     Active Substance: AZELASTINE HYDROCHLORIDE
  18. CHLORHEXIDINE GLUCONATE. [Concomitant]
     Active Substance: CHLORHEXIDINE GLUCONATE
  19. KETOCONAZOLE. [Concomitant]
     Active Substance: KETOCONAZOLE
  20. MYRBETRIQ [Concomitant]
     Active Substance: MIRABEGRON
  21. TRAZODONE [Concomitant]
     Active Substance: TRAZODONE HYDROCHLORIDE
  22. RIVASTIGMINE. [Suspect]
     Active Substance: RIVASTIGMINE
     Dosage: 935MG
  23. DULOXETINE. [Concomitant]
     Active Substance: DULOXETINE
  24. RIVASTIGMINE. [Suspect]
     Active Substance: RIVASTIGMINE
     Dosage: 4.6MG
  25. ASPIRIN [ACETYLSALICYLIC ACID] [Concomitant]
     Active Substance: ASPIRIN
  26. FLUOCINONIDE. [Concomitant]
     Active Substance: FLUOCINONIDE
  27. BISACODYL. [Concomitant]
     Active Substance: BISACODYL
  28. FLAXSEED [Concomitant]
     Active Substance: FLAX SEED
  29. PRAZOSIN HCL [Concomitant]
     Active Substance: PRAZOSIN HYDROCHLORIDE
  30. PRILOSEC [Concomitant]
     Active Substance: OMEPRAZOLE MAGNESIUM
  31. LOTEMAX [Concomitant]
     Active Substance: LOTEPREDNOL ETABONATE

REACTIONS (10)
  - Suicidal behaviour [Recovered/Resolved]
  - Affective disorder [Recovered/Resolved]
  - Paranoia [Recovered/Resolved]
  - Sedation [Recovered/Resolved]
  - Mania [Recovered/Resolved]
  - Fall [Not Recovered/Not Resolved]
  - Death [Fatal]
  - Anxiety [Not Recovered/Not Resolved]
  - Aggression [Recovered/Resolved]
  - Gastric disorder [Not Recovered/Not Resolved]

NARRATIVE: CASE EVENT DATE: 2021
